FAERS Safety Report 5412765-0 (Version None)
Quarter: 2007Q3

REPORT INFORMATION
  Report Type: 
  Country: None (occurrence: None)
  Receive Date: 20070809
  Receipt Date: 20070703
  Transmission Date: 20080115
  Serious: Yes (Hospitalization)
  Sender: FDA-Public Use
  Company Number: 100#08#2007-02888

PATIENT
  Age: 61 Year
  Sex: Female

DRUGS (4)
  1. METHOTREXATE [Suspect]
     Indication: RHEUMATOID ARTHRITIS
     Dosage: 7.5 MG/WEEK ORAL
     Route: 048
  2. SULFAMETHOXAZOLE AND TRIMETHOPRIM [Suspect]
     Indication: DRUG USE FOR UNKNOWN INDICATION
  3. DICLOFENAC (DICLOFENAC) (DICLOFENAC) [Concomitant]
  4. MYSTECLIN (MYSTECLIN) [Concomitant]

REACTIONS (15)
  - BLOOD ALBUMIN DECREASED [None]
  - BONE MARROW FAILURE [None]
  - COUGH [None]
  - DIARRHOEA [None]
  - DRUG INTERACTION [None]
  - EPISTAXIS [None]
  - LUNG CONSOLIDATION [None]
  - MOUTH ULCERATION [None]
  - NASAL ULCER [None]
  - PANCYTOPENIA [None]
  - PSEUDOMONAS INFECTION [None]
  - PYREXIA [None]
  - RENAL IMPAIRMENT [None]
  - RHONCHI [None]
  - SPUTUM CULTURE POSITIVE [None]
